FAERS Safety Report 8262064-7 (Version None)
Quarter: 2012Q2

REPORT INFORMATION
  Report Type: 
  Country: None (occurrence: None)
  Receive Date: 20120405
  Receipt Date: 20120330
  Transmission Date: 20120825
  Serious: Yes (Other)
  Sender: FDA-Public Use
  Company Number: PHEH2009US02808

PATIENT
  Sex: Female

DRUGS (17)
  1. COMPAZINE [Concomitant]
  2. SYNTHROID [Concomitant]
     Dosage: 100 UG, QD
  3. OXYCODONE HCL AND ACETAMINOPHEN [Concomitant]
  4. RADIATION THERAPY [Concomitant]
  5. NEXIUM [Concomitant]
  6. ZITHROMAX [Concomitant]
  7. PAXIL [Concomitant]
  8. AUGMENTIN '125' [Concomitant]
  9. PAROXETINE [Concomitant]
  10. CELEXA [Concomitant]
  11. COUMADIN [Concomitant]
  12. FAMOTIDINE [Concomitant]
  13. AMOXICILLIN [Concomitant]
  14. LEVAQUIN [Concomitant]
  15. HYDROCODONE [Concomitant]
  16. ELIDEL [Suspect]
     Indication: ALOPECIA
     Dosage: UNK
     Route: 061
     Dates: start: 20020301
  17. ANZEMET [Concomitant]

REACTIONS (28)
  - HYPERHIDROSIS [None]
  - LYMPHADENOPATHY [None]
  - ABORTION SPONTANEOUS [None]
  - INJURY [None]
  - NAUSEA [None]
  - MATERNAL EXPOSURE DURING PREGNANCY [None]
  - NORMAL NEWBORN [None]
  - RENAL CYST [None]
  - FATIGUE [None]
  - MENSTRUATION IRREGULAR [None]
  - PHARYNGITIS STREPTOCOCCAL [None]
  - POSTPARTUM DEPRESSION [None]
  - JUGULAR VEIN THROMBOSIS [None]
  - SMEAR CERVIX ABNORMAL [None]
  - MALAISE [None]
  - BACK PAIN [None]
  - PULMONARY VALVE INCOMPETENCE [None]
  - MUCOSAL INFLAMMATION [None]
  - ANXIETY [None]
  - HYPOTHYROIDISM [None]
  - TEMPERATURE INTOLERANCE [None]
  - HOT FLUSH [None]
  - TRICUSPID VALVE INCOMPETENCE [None]
  - RESPIRATORY FAILURE [None]
  - HODGKIN'S DISEASE [None]
  - NEUTROPENIA [None]
  - DEPRESSION [None]
  - LYMPHADENOPATHY MEDIASTINAL [None]
